FAERS Safety Report 8247145-6 (Version None)
Quarter: 2012Q1

REPORT INFORMATION
  Report Type: 
  Country: None (occurrence: None)
  Receive Date: 20120329
  Receipt Date: 20120329
  Transmission Date: 20120608
  Serious: Yes (Hospitalization)
  Sender: FDA-Public Use
  Company Number: None

PATIENT
  Age: 75 Year
  Sex: Male
  Weight: 94.3482 kg

DRUGS (1)
  1. XARELTO [Suspect]
     Indication: HEART RATE IRREGULAR
     Dosage: 1 PER DAY

REACTIONS (1)
  - BLOOD URINE PRESENT [None]
